FAERS Safety Report 5737768-8 (Version None)
Quarter: 2008Q2

REPORT INFORMATION
  Report Type: 
  Country: None (occurrence: None)
  Receive Date: 20080514
  Receipt Date: 20080507
  Transmission Date: 20081010
  Serious: Yes (Death, Hospitalization)
  Sender: FDA-Public Use
  Company Number: ZA-AVENTIS-200813741GDDC

PATIENT
  Age: 63 Year
  Sex: Male

DRUGS (6)
  1. TAXOTERE [Suspect]
     Route: 042
     Dates: start: 20080409, end: 20080409
  2. BETANOID [Concomitant]
     Indication: PREMEDICATION
     Route: 042
     Dates: start: 20080409, end: 20080409
  3. KYTRIL                             /01178101/ [Concomitant]
     Indication: PREMEDICATION
     Route: 042
     Dates: start: 20080409, end: 20080409
  4. BETANOID [Concomitant]
     Indication: PROPHYLAXIS
     Route: 048
     Dates: start: 20080408, end: 20080410
  5. TAGAMET [Concomitant]
     Indication: PREMEDICATION
     Route: 042
     Dates: start: 20080409, end: 20080409
  6. CLOPAMON [Concomitant]
     Indication: PROPHYLAXIS
     Route: 048
     Dates: start: 20080409, end: 20080413

REACTIONS (6)
  - CARDIOGENIC SHOCK [None]
  - DYSPNOEA [None]
  - HYPOTENSION [None]
  - NEUTROPENIA [None]
  - RALES [None]
  - SEPSIS [None]
